FAERS Safety Report 4916514-1 (Version None)
Quarter: 2006Q1

REPORT INFORMATION
  Report Type: 
  Country: None (occurrence: None)
  Receive Date: 20060220
  Receipt Date: 20050426
  Transmission Date: 20060701
  Serious: Yes (Hospitalization)
  Sender: FDA-Public Use
  Company Number: PHHO2005FR06744

PATIENT
  Age: 69 Year
  Sex: Male
  Weight: 87.2 kg

DRUGS (6)
  1. ASPERGIC [Concomitant]
  2. NATEGLINIDE [Suspect]
     Indication: GLUCOSE TOLERANCE IMPAIRED
     Dosage: 30 MG, LEVEL 1
     Route: 048
     Dates: start: 20020326
  3. NATEGLINIDE [Suspect]
     Dosage: LEVEL 2
     Route: 048
     Dates: end: 20050418
  4. QUESTRAN [Concomitant]
  5. VALSARTAN [Suspect]
     Indication: CARDIOVASCULAR DISORDER
     Dosage: LEVEL 1
     Route: 048
     Dates: start: 20020326
  6. VALSARTAN [Suspect]
     Dosage: LEVEL 2
     Route: 048

REACTIONS (6)
  - BILE DUCT OBSTRUCTION [None]
  - CHOLANGITIS [None]
  - JAUNDICE [None]
  - PANCREATITIS [None]
  - PYREXIA [None]
  - SPLENECTOMY [None]
